FAERS Safety Report 23523558 (Version 4)
Quarter: 2025Q4

REPORT INFORMATION
  Report Type: Spontaneous
  Country: JP (occurrence: JP)
  Receive Date: 20240214
  Receipt Date: 20251113
  Transmission Date: 20260117
  Serious: Yes (Hospitalization, Other)
  Sender: ABBVIE
  Company Number: JP-TAKEDA-2024TJP000069

PATIENT
  Age: 67 Year
  Sex: Male

DRUGS (1)
  1. LEUPLIN [Suspect]
     Active Substance: LEUPROLIDE ACETATE
     Indication: Prostate cancer
     Dosage: LEUPLIN PRO FOR INJECTION KIT 22.5 MG
     Route: 058

REACTIONS (3)
  - Colon cancer [Recovered/Resolved]
  - Pituitary tumour benign [Recovering/Resolving]
  - Pituitary apoplexy [Recovering/Resolving]

NARRATIVE: CASE EVENT DATE: 20231201
